FAERS Safety Report 15147630 (Version 2)
Quarter: 2018Q4

REPORT INFORMATION
  Report Type: Spontaneous
  Country: US (occurrence: US)
  Receive Date: 20180716
  Receipt Date: 20181226
  Transmission Date: 20190204
  Serious: No
  Sender: FDA-Public Use
  Company Number: US-PFIZER INC-2018283510

PATIENT
  Age: 81 Year
  Sex: Female

DRUGS (2)
  1. IBRANCE [Suspect]
     Active Substance: PALBOCICLIB
     Dosage: 75 MG, CYCLIC (TAKE 1 CAPSULE BY MOUTH DAILY 21 DAYS ON AND 1 WEEK OFF)
     Route: 048
     Dates: start: 201804
  2. IBRANCE [Suspect]
     Active Substance: PALBOCICLIB
     Indication: BREAST CANCER FEMALE
     Dosage: 125 MG, UNK

REACTIONS (8)
  - Arthralgia [Unknown]
  - Epistaxis [Recovered/Resolved]
  - Alopecia [Unknown]
  - Skin haemorrhage [Recovered/Resolved]
  - Dry skin [Unknown]
  - Skin atrophy [Unknown]
  - Asthenia [Unknown]
  - Pain [Unknown]
